FAERS Safety Report 5852670-9 (Version None)
Quarter: 2008Q3

REPORT INFORMATION
  Report Type: 
  Country: None (occurrence: None)
  Receive Date: 20080821
  Receipt Date: 20080808
  Transmission Date: 20090109
  Serious: Yes (Death)
  Sender: FDA-Public Use
  Company Number: JP-PFIZER INC-2008061892

PATIENT
  Sex: Female
  Weight: 39 kg

DRUGS (10)
  1. REVATIO [Suspect]
     Indication: PULMONARY ARTERIAL HYPERTENSION
     Dosage: DAILY DOSE:40MG
     Route: 048
     Dates: start: 20080605, end: 20080716
  2. LASIX [Concomitant]
     Route: 048
  3. ALDACTONE [Concomitant]
     Route: 048
  4. ERYTHROCIN [Concomitant]
     Route: 048
  5. MUCOSAL [Concomitant]
     Route: 048
  6. MEDROL [Concomitant]
     Route: 048
  7. ALFACALCIDOL [Concomitant]
     Route: 048
  8. MUCOSTA [Concomitant]
     Route: 048
  9. LIVALO [Concomitant]
     Route: 048
  10. BERAPROST [Concomitant]
     Route: 048

REACTIONS (1)
  - DEATH [None]
